FAERS Safety Report 17430293 (Version 3)
Quarter: 2020Q2

REPORT INFORMATION
  Report Type: Spontaneous
  Country: US (occurrence: US)
  Receive Date: 20200218
  Receipt Date: 20200507
  Transmission Date: 20200713
  Serious: No
  Sender: FDA-Public Use
  Company Number: US-PFIZER INC-2020069528

PATIENT
  Age: 60 Year
  Sex: Female
  Weight: 60.77 kg

DRUGS (13)
  1. VIACTIV [CALCIUM;COLECALCIFEROL] [Concomitant]
     Dosage: UNK
     Dates: end: 201901
  2. ZADITOR [KETOTIFEN] [Concomitant]
     Indication: EYE PRURITUS
     Dosage: UNK UNK, AS NEEDED (OFF + ON)
     Dates: start: 2019
  3. VITAMIN D3 [Concomitant]
     Active Substance: CHOLECALCIFEROL
     Dosage: 50 UG, 1X/DAY
  4. ZYLET [Concomitant]
     Active Substance: LOTEPREDNOL ETABONATE\TOBRAMYCIN
     Dosage: UNK UNK, AS NEEDED (OFF+ON 10-14 DAYS)
     Dates: start: 2018
  5. SYSTANE LUBRICANT [Concomitant]
     Active Substance: POLYETHYLENE GLYCOL 400\PROPYLENE GLYCOL
     Dosage: UNK
     Dates: start: 202002
  6. ATORVASTATIN [Concomitant]
     Active Substance: ATORVASTATIN
     Indication: BLOOD CHOLESTEROL INCREASED
     Dosage: 20 MG, 1X/DAY
     Dates: start: 20180802
  7. PREMARIN [Suspect]
     Active Substance: ESTROGENS, CONJUGATED
     Indication: ATROPHIC VULVOVAGINITIS
  8. ZYLET [Concomitant]
     Active Substance: LOTEPREDNOL ETABONATE\TOBRAMYCIN
     Dosage: UNK UNK, AS NEEDED (OFF+ON 10-14 DAYS)
     Dates: start: 2019
  9. PREMARIN [Suspect]
     Active Substance: ESTROGENS, CONJUGATED
     Indication: MENOPAUSE
     Dosage: 1 G, 2X/WEEK
     Route: 067
  10. PREMARIN [Suspect]
     Active Substance: ESTROGENS, CONJUGATED
     Indication: VULVOVAGINAL DRYNESS
     Dosage: 1 G, 2X/WEEK
     Route: 067
  11. ZYLET [Concomitant]
     Active Substance: LOTEPREDNOL ETABONATE\TOBRAMYCIN
     Dosage: UNK UNK, AS NEEDED (OFF+ON 10-14 DAYS)
     Dates: start: 2020
  12. ZYLET [Concomitant]
     Active Substance: LOTEPREDNOL ETABONATE\TOBRAMYCIN
     Dosage: UNK, 4X/DAY (0.5%, FOR 10 DAYS)
  13. KRILL OIL [Concomitant]
     Active Substance: DIETARY SUPPLEMENT\KRILL OIL
     Dosage: 500 MG, 1X/DAY

REACTIONS (6)
  - Visual impairment [Recovering/Resolving]
  - Lacrimation increased [Recovering/Resolving]
  - Hordeolum [Recovered/Resolved]
  - Eye infection [Recovered/Resolved]
  - Dacryostenosis acquired [Recovered/Resolved]
  - Off label use [Unknown]

NARRATIVE: CASE EVENT DATE: 201804
